FAERS Safety Report 25987909 (Version 1)
Quarter: 2025Q4

REPORT INFORMATION
  Report Type: Spontaneous
  Country: US (occurrence: US)
  Receive Date: 20251103
  Receipt Date: 20251103
  Transmission Date: 20260117
  Serious: Yes (Hospitalization, Other)
  Sender: EPIC PHARM
  Company Number: US-EPICPHARMA-US-2025EPCLIT01185

PATIENT
  Age: 75 Year
  Sex: Female
  Weight: 45 kg

DRUGS (6)
  1. AMINOCAPROIC ACID [Suspect]
     Active Substance: AMINOCAPROIC ACID
     Indication: Hyperfibrinolysis
     Route: 065
  2. AMINOCAPROIC ACID [Suspect]
     Active Substance: AMINOCAPROIC ACID
     Route: 065
  3. FENTANYL [Concomitant]
     Active Substance: FENTANYL
     Route: 065
  4. PROPOFOL [Concomitant]
     Active Substance: PROPOFOL
     Route: 065
  5. ROCURONIUM [Concomitant]
     Active Substance: ROCURONIUM BROMIDE
     Route: 065
  6. ISOFLURANE [Concomitant]
     Active Substance: ISOFLURANE
     Route: 065

REACTIONS (1)
  - Intrapericardial thrombosis [Recovered/Resolved]
